FAERS Safety Report 9625399 (Version 1)
Quarter: 2013Q4

REPORT INFORMATION
  Report Type: Spontaneous
  Country: ES (occurrence: ES)
  Receive Date: 20131016
  Receipt Date: 20131016
  Transmission Date: 20140711
  Serious: Yes (Other)
  Sender: FDA-Public Use
  Company Number: ES-MERCK-1310ESP005685

PATIENT
  Age: 64 Year
  Sex: Female

DRUGS (15)
  1. RIBAVIRIN [Suspect]
     Indication: HEPATITIS C
     Dosage: UNK
     Route: 048
  2. RIBAVIRIN [Suspect]
     Dosage: UNK
     Route: 048
  3. RIBAVIRIN [Suspect]
     Dosage: 600MG DAILY
     Route: 048
  4. RIBAVIRIN [Suspect]
     Dosage: 200MG DAILY
     Route: 048
  5. PEGINTERFERON ALFA-2B [Suspect]
     Dosage: UNK
  6. PEGINTERFERON ALFA-2B [Suspect]
     Dosage: UNK
  7. VICTRELIS [Suspect]
     Indication: HEPATITIS C
     Route: 048
  8. PEGASYS [Suspect]
     Dosage: 180(NOS) DAILY
  9. PEGASYS [Suspect]
     Dosage: 135(NOS) DAILY
  10. ADVAGRAF [Concomitant]
  11. CYCLOSPORINE [Concomitant]
     Dosage: 125MG/DAY
  12. CYCLOSPORINE [Concomitant]
     Dosage: 100MG/DAY
  13. AMLODIPINE [Concomitant]
  14. VALSARTAN [Concomitant]
  15. MIRTAZAPINE [Concomitant]
     Route: 048

REACTIONS (2)
  - Anaemia [Unknown]
  - Leukopenia [Unknown]
